FAERS Safety Report 5806680-8 (Version None)
Quarter: 2008Q3

REPORT INFORMATION
  Report Type: 
  Country: None (occurrence: None)
  Receive Date: 20080710
  Receipt Date: 20080703
  Transmission Date: 20090109
  Serious: Yes (Death)
  Sender: FDA-Public Use
  Company Number: DE-GENENTECH-264100

PATIENT
  Age: 75 Year
  Sex: Female

DRUGS (1)
  1. ACTIVASE [Suspect]
     Indication: CEREBRAL ARTERY OCCLUSION
     Dosage: 0.9 MG/KG, UNK
     Route: 042

REACTIONS (1)
  - DEATH [None]
